FAERS Safety Report 7754709-2 (Version None)
Quarter: 2011Q3

REPORT INFORMATION
  Report Type: 
  Country: None (occurrence: None)
  Receive Date: 20110915
  Receipt Date: 20110622
  Transmission Date: 20111222
  Serious: Yes (Other)
  Sender: FDA-Public Use
  Company Number: PHHY2011US55811

PATIENT
  Age: 81 Year
  Sex: Female

DRUGS (2)
  1. EXELON [Suspect]
     Dosage: 4.6 MG, PER DAY
     Route: 062
  2. ASPIRIN [Concomitant]

REACTIONS (6)
  - ABASIA [None]
  - HYPOTONIA [None]
  - FEEDING DISORDER [None]
  - CONTUSION [None]
  - SKIN IRRITATION [None]
  - MOBILITY DECREASED [None]
